FAERS Safety Report 10044739 (Version 1)
Quarter: 2014Q1

REPORT INFORMATION
  Report Type: Spontaneous
  Country: GB (occurrence: None)
  Receive Date: 20140326
  Receipt Date: 20140326
  Transmission Date: 20141002
  Serious: Yes (Hospitalization, Disabling)
  Sender: FDA-Public Use
  Company Number: GB-ALKEM-000539

PATIENT
  Sex: Female

DRUGS (10)
  1. QUETIAPINE (QUETIAPINE) [Suspect]
     Indication: PRODUCT USED FOR UNKNOWN INDICATION
     Dosage: 0 TIMES PER 1 DAY
     Route: 048
  2. PARACETAMOL [Concomitant]
  3. LORAZEPAM [Concomitant]
  4. DIAZEPAM [Concomitant]
  5. AMOXICILLIN [Concomitant]
  6. MIRTAZAPINE [Concomitant]
  7. ATENOLOL [Concomitant]
  8. MOVICOL [Concomitant]
  9. CODEINE [Concomitant]
  10. DIFFLAM (DIFFLAM) [Concomitant]

REACTIONS (5)
  - Gait disturbance [None]
  - Blepharospasm [None]
  - Tardive dyskinesia [None]
  - Tongue movement disturbance [None]
  - Dyskinesia [None]
